FAERS Safety Report 9878300 (Version 2)
Quarter: 2014Q1

REPORT INFORMATION
  Report Type: Spontaneous
  Country: US (occurrence: US)
  Receive Date: 20140206
  Receipt Date: 20140206
  Transmission Date: 20141002
  Serious: No
  Sender: FDA-Public Use
  Company Number: US-ALLERGAN-1310698US

PATIENT
  Age: 37 Year
  Sex: Male

DRUGS (1)
  1. BOTOX COSMETIC [Suspect]
     Indication: MUSCLE HYPERTROPHY
     Dosage: 4 UNITS, SINGLE
     Dates: start: 20100823, end: 20100823

REACTIONS (3)
  - Off label use [Unknown]
  - Eyelid ptosis [Not Recovered/Not Resolved]
  - Paraesthesia [Not Recovered/Not Resolved]
